FAERS Safety Report 23898843 (Version 2)
Quarter: 2024Q2

REPORT INFORMATION
  Report Type: Report from Study
  Country: PT (occurrence: PT)
  Receive Date: 20240525
  Receipt Date: 20240607
  Transmission Date: 20240715
  Serious: Yes (Hospitalization)
  Sender: FDA-Public Use
  Company Number: PT-ABBVIE-5773765

PATIENT
  Age: 85 Year
  Sex: Female

DRUGS (13)
  1. CARBIDOPA\LEVODOPA [Suspect]
     Active Substance: CARBIDOPA\LEVODOPA
     Indication: Parkinson^s disease
     Dosage: 20 MG + 5 MG?FREQUENCY TEXT: MORN:7.5CC;MAINT:2CC/H;EXTR:1CC
     Route: 050
     Dates: start: 20230710
  2. CARBIDOPA\LEVODOPA [Suspect]
     Active Substance: CARBIDOPA\LEVODOPA
     Dosage: 20 MG + 5 MG?FREQUENCY TEXT: MORN:11.9 CC;MAINT:4.3CC/H;EXTR:4CC
     Route: 050
     Dates: start: 2024, end: 202405
  3. CARBIDOPA\LEVODOPA [Suspect]
     Active Substance: CARBIDOPA\LEVODOPA
     Dosage: 20 MG + 5 MG (GASTRIC)?FREQUENCY TEXT: MORN:11.9CC;MAINT:4.3CC/H;EXTR:4CC
     Route: 050
     Dates: start: 202405, end: 20240604
  4. CARBIDOPA\LEVODOPA [Suspect]
     Active Substance: CARBIDOPA\LEVODOPA
     Dosage: 20 MG + 5 MG (GASTRIC)?FREQUENCY TEXT: MORN:10.5CC;MAINT:3.7CC/H;EXTR:4CC
     Route: 050
     Dates: start: 20240604
  5. ASPIRIN [Concomitant]
     Active Substance: ASPIRIN
     Indication: Product used for unknown indication
     Dosage: 1 TABLET (AT LUNCH)?START DATE TEXT: BEFORE DUODOPA?FORM STRENGTH: 150 MILLIGRAM
  6. SERTRALINE [Concomitant]
     Active Substance: SERTRALINE HYDROCHLORIDE
     Indication: Product used for unknown indication
     Dosage: 1 TABLET, FORM STRENGTH: 50 MILLIGRAM?FREQUENCY TEXT: AT 9 AM?START DATE TEXT: BEFORE DUODOPA
  7. LETROZOLE [Concomitant]
     Active Substance: LETROZOLE
     Indication: Product used for unknown indication
     Dosage: 1 TABLET?FREQUENCY TEXT: AT FASTING?START DATE TEXT: BEFORE DUODOPA?FORM STRENGTH: 2.5 MILLIGRAM
  8. CLONAZEPAM [Concomitant]
     Active Substance: CLONAZEPAM
     Indication: Product used for unknown indication
     Dosage: 1 TABLET?FORM STRENGTH: 0.5 MILLIGRAM?START DATE TEXT: BEFORE DUODOPA?FREQUENCY TEXT: AT BEDTIME
  9. BISOPROLOL [Concomitant]
     Active Substance: BISOPROLOL\BISOPROLOL FUMARATE
     Indication: Product used for unknown indication
     Dosage: 1 TABLET?FREQUENCY TEXT: AT 9 AM?START DATE TEXT: BEFORE DUODOPA?FORM STRENGTH: 5 MILLIGRAM
  10. PANTOPRAZOLE [Concomitant]
     Active Substance: PANTOPRAZOLE
     Indication: Product used for unknown indication
     Dosage: 1 TABLET?FREQUENCY TEXT: AT FASTING?START DATE TEXT: BEFORE DUODOPA?FORM STRENGTH: 40 MILLIGRAM
  11. QUETIAPINE [Concomitant]
     Active Substance: QUETIAPINE
     Indication: Product used for unknown indication
     Dosage: 2 TABLET?START DATE TEXT: BEFORE DUODOPA?FORM STRENGTH: 50 MILLIGRAM
  12. RIVASTIGMINE [Concomitant]
     Active Substance: RIVASTIGMINE
     Indication: Product used for unknown indication
     Dosage: 2 TABLET, FORM STRENGTH: 4.5 MILLIGRAM?START DATE TEXT: BEFORE DUODOPA
  13. MIRTAZAPINE [Concomitant]
     Active Substance: MIRTAZAPINE
     Indication: Product used for unknown indication
     Dosage: 1 TABLET?FREQUENCY TEXT: AT BEDTIME?START DATE TEXT: BEFORE DUODOPA?FORM STRENGTH: 15 MILLIGRAM

REACTIONS (2)
  - Pelvic fracture [Recovered/Resolved]
  - Fall [Recovered/Resolved]

NARRATIVE: CASE EVENT DATE: 20240522
